FAERS Safety Report 7437223-3 (Version None)
Quarter: 2011Q2

REPORT INFORMATION
  Report Type: 
  Country: None (occurrence: None)
  Receive Date: 20110426
  Receipt Date: 20110414
  Transmission Date: 20111010
  Serious: Yes (Hospitalization, Other)
  Sender: FDA-Public Use
  Company Number: FR-BRISTOL-MYERS SQUIBB COMPANY-15675929

PATIENT
  Age: 70 Year
  Sex: Male

DRUGS (5)
  1. TRUVADA [Suspect]
     Indication: HIV INFECTION
     Dosage: 1DF:200MG/245 MG
     Route: 048
     Dates: start: 20060418, end: 20110302
  2. HYDROCORTISONE [Concomitant]
  3. SOLUPRED [Concomitant]
     Indication: LUNG INFECTION
  4. REYATAZ [Suspect]
     Indication: HIV INFECTION
     Route: 048
     Dates: start: 20060418, end: 20110302
  5. NORVIR [Suspect]
     Indication: HIV INFECTION
     Route: 048
     Dates: start: 20060418, end: 20110302

REACTIONS (3)
  - MYOSITIS [None]
  - RHABDOMYOLYSIS [None]
  - BLOOD PROLACTIN INCREASED [None]
